FAERS Safety Report 5212862-9 (Version None)
Quarter: 2007Q1

REPORT INFORMATION
  Report Type: 
  Country: None (occurrence: None)
  Receive Date: 20070119
  Receipt Date: 20070110
  Transmission Date: 20070707
  Serious: Yes (Hospitalization)
  Sender: FDA-Public Use
  Company Number: PHRM2007FR00496

PATIENT
  Age: 7 Year
  Sex: Male
  Weight: 26 kg

DRUGS (2)
  1. ZITHROMAX [Suspect]
     Dosage: 1TAB/DAY , 5 DAYS/WEEK
     Route: 048
     Dates: start: 20051101, end: 20060301
  2. TOBI [Suspect]
     Dosage: 300 MG, BID
     Dates: start: 20051101, end: 20060301

REACTIONS (5)
  - INNER EAR DISORDER [None]
  - NYSTAGMUS [None]
  - VERTIGO [None]
  - VESTIBULAR DISORDER [None]
  - VISUAL DISTURBANCE [None]
